FAERS Safety Report 6641795-6 (Version None)
Quarter: 2010Q1

REPORT INFORMATION
  Report Type: 
  Country: None (occurrence: None)
  Receive Date: 20100316
  Receipt Date: 20100308
  Transmission Date: 20100710
  Serious: Yes (Hospitalization)
  Sender: FDA-Public Use
  Company Number: 2010AC000176

PATIENT
  Age: 70 Year
  Sex: Male
  Weight: 144.2439 kg

DRUGS (13)
  1. DIGOXIN [Suspect]
     Dosage: .125 MG, QD; PO
     Route: 048
     Dates: start: 20030101, end: 20080428
  2. METAMUCIL-2 [Concomitant]
  3. SERTRALINE HCL [Concomitant]
  4. FERROUS SULFATE TAB [Concomitant]
  5. BUMEX [Concomitant]
  6. POTASSIUM [Concomitant]
  7. COREG [Concomitant]
  8. GLUCATROL [Concomitant]
  9. CORDARONE [Concomitant]
  10. ECOTRIN [Concomitant]
  11. MULTI-VITAMINS [Concomitant]
  12. ADVAIR DISKUS 100/50 [Concomitant]
  13. GLUCOPHAGE [Concomitant]

REACTIONS (5)
  - FATIGUE [None]
  - HEADACHE [None]
  - MALAISE [None]
  - PALPITATIONS [None]
  - TREMOR [None]
